FAERS Safety Report 17035026 (Version 3)
Quarter: 2020Q4

REPORT INFORMATION
  Report Type: Report from Study
  Country: DE (occurrence: DE)
  Receive Date: 20191115
  Receipt Date: 20201009
  Transmission Date: 20210113
  Serious: Yes (Hospitalization)
  Sender: FDA-Public Use
  Company Number: DE-BIOGEN-2019BI00805442

PATIENT
  Age: 60 Year
  Sex: Female

DRUGS (8)
  1. AVONEX PEN [Suspect]
     Active Substance: INTERFERON BETA-1A
  2. AVONEX [Suspect]
     Active Substance: INTERFERON BETA-1A
     Indication: MULTIPLE SCLEROSIS
     Route: 030
     Dates: start: 20180419, end: 202006
  3. AVONEX [Suspect]
     Active Substance: INTERFERON BETA-1A
  4. AVONEX [Suspect]
     Active Substance: INTERFERON BETA-1A
  5. AVONEX PEN [Suspect]
     Active Substance: INTERFERON BETA-1A
  6. AVONEX PEN [Suspect]
     Active Substance: INTERFERON BETA-1A
  7. AVONEX [Suspect]
     Active Substance: INTERFERON BETA-1A
  8. AVONEX PEN [Suspect]
     Active Substance: INTERFERON BETA-1A
     Indication: MULTIPLE SCLEROSIS
     Route: 030
     Dates: start: 20180419, end: 202006

REACTIONS (1)
  - Neurodermatitis [Not Recovered/Not Resolved]

NARRATIVE: CASE EVENT DATE: 20191007
